FAERS Safety Report 7243884-4 (Version None)
Quarter: 2011Q1

REPORT INFORMATION
  Report Type: 
  Country: None (occurrence: None)
  Receive Date: 20110125
  Receipt Date: 20110118
  Transmission Date: 20110831
  Serious: Yes (Other)
  Sender: FDA-Public Use
  Company Number: A0907799A

PATIENT
  Age: 50 Year
  Sex: Female

DRUGS (2)
  1. TYKERB [Suspect]
     Indication: BREAST CANCER
     Dosage: 1250MG PER DAY
     Dates: start: 20100501, end: 20101101
  2. XELODA [Suspect]
     Indication: BREAST CANCER
     Dosage: 2000MG PER DAY
     Dates: start: 20100501, end: 20101101

REACTIONS (1)
  - PALMAR-PLANTAR ERYTHRODYSAESTHESIA SYNDROME [None]
